FAERS Safety Report 12831162 (Version 3)
Quarter: 2016Q4

REPORT INFORMATION
  Report Type: Report from Study
  Country: JP (occurrence: JP)
  Receive Date: 20161008
  Receipt Date: 20161109
  Transmission Date: 20170207
  Serious: Yes (Hospitalization, Other)
  Sender: FDA-Public Use
  Company Number: JP-AMGEN-JPNCT2016137935

PATIENT
  Age: 70 Year
  Sex: Female
  Weight: 52 kg

DRUGS (10)
  1. DENOTAS [Suspect]
     Active Substance: CALCIUM CARBONATE\CHOLECALCIFEROL\MAGNESIUM CARBONATE
     Indication: MINERAL SUPPLEMENTATION
  2. THYRADIN S [Suspect]
     Active Substance: LEVOTHYROXINE SODIUM
     Indication: HYPOTHYROIDISM
     Dosage: 50 MUG, QD
     Route: 048
     Dates: start: 20130424
  3. CRESTOR [Suspect]
     Active Substance: ROSUVASTATIN CALCIUM
     Indication: HYPERCHOLESTEROLAEMIA
     Dosage: 2.5 MG, QD
     Route: 048
     Dates: start: 20130424
  4. LOXONIN [Suspect]
     Active Substance: LOXOPROFEN SODIUM
     Indication: RHEUMATOID ARTHRITIS
     Dosage: 60 MG, AS NECESSARY
     Route: 048
     Dates: start: 20131225
  5. MOHRUS [Concomitant]
     Active Substance: KETOPROFEN
     Indication: RHEUMATOID ARTHRITIS
     Dosage: UNK UNK, AS NECESSARY
     Route: 050
     Dates: start: 20140625
  6. DENOSUMAB [Suspect]
     Active Substance: DENOSUMAB
     Indication: RHEUMATOID ARTHRITIS
     Dosage: 60 MG, Q6MO
     Route: 058
     Dates: start: 20140731, end: 20160728
  7. REBAMIPIDE [Suspect]
     Active Substance: REBAMIPIDE
     Indication: GASTRITIS PROPHYLAXIS
     Dosage: 100 MG, AS NEEDED (WITH LOXONIN)
     Route: 048
     Dates: start: 20131225
  8. AZULFIDINE EN-TABS [Suspect]
     Active Substance: SULFASALAZINE
     Indication: RHEUMATOID ARTHRITIS
     Dosage: 500 MG, BID
     Route: 048
     Dates: start: 20130424
  9. PREDNISOLONE. [Suspect]
     Active Substance: PREDNISOLONE
     Indication: RHEUMATOID ARTHRITIS
     Dosage: 2.5 MG, QD
     Route: 048
     Dates: start: 20160204
  10. DENOTAS [Suspect]
     Active Substance: CALCIUM CARBONATE\CHOLECALCIFEROL\MAGNESIUM CARBONATE
     Indication: VITAMIN SUPPLEMENTATION
     Dosage: 2 DF, QD
     Route: 048
     Dates: start: 20140703, end: 20160927

REACTIONS (1)
  - Brain neoplasm [Not Recovered/Not Resolved]

NARRATIVE: CASE EVENT DATE: 20160910
